FAERS Safety Report 7440642-2 (Version None)
Quarter: 2011Q2

REPORT INFORMATION
  Report Type: 
  Country: None (occurrence: None)
  Receive Date: 20110427
  Receipt Date: 20110422
  Transmission Date: 20111010
  Serious: Yes (Death)
  Sender: FDA-Public Use
  Company Number: TR-PFIZER INC-2011087605

PATIENT
  Age: 60 Year
  Sex: Female

DRUGS (5)
  1. VORICONAZOLE [Suspect]
     Dosage: 200 MG, 2X/DAY
     Route: 042
     Dates: start: 20090706, end: 20090722
  2. IMIPENEM [Suspect]
     Dosage: 2 G, 3X/DAY
     Route: 042
     Dates: start: 20090710, end: 20090727
  3. TEICOPLANIN [Suspect]
     Dosage: 140 MG, 1X/DAY
     Route: 042
     Dates: start: 20090710, end: 20090727
  4. CASPOFUNGIN [Suspect]
     Dosage: 50 MG, 1X/DAY
     Route: 042
     Dates: start: 20090723, end: 20090727
  5. SULPERAZON [Suspect]
     Dosage: 2 G, 3X/DAY
     Route: 042
     Dates: start: 20090530

REACTIONS (1)
  - DEATH [None]
